FAERS Safety Report 23446393 (Version 2)
Quarter: 2024Q1

REPORT INFORMATION
  Report Type: Spontaneous
  Country: DE (occurrence: DE)
  Receive Date: 20240126
  Receipt Date: 20240227
  Transmission Date: 20240410
  Serious: Yes (Hospitalization, Other)
  Sender: FDA-Public Use
  Company Number: DE-BAYER-2024A011915

PATIENT
  Age: 47 Year
  Sex: Female

DRUGS (1)
  1. MIRENA [Suspect]
     Active Substance: LEVONORGESTREL
     Dosage: 20?G/DAY
     Route: 015
     Dates: start: 202304

REACTIONS (9)
  - Blindness unilateral [Not Recovered/Not Resolved]
  - Tremor [Recovered/Resolved]
  - Dizziness [None]
  - Headache [None]
  - Breast tenderness [None]
  - Blood pressure increased [None]
  - Optic ischaemic neuropathy [Not Recovered/Not Resolved]
  - Impaired quality of life [None]
  - Vascular occlusion [None]

NARRATIVE: CASE EVENT DATE: 20231001
